FAERS Safety Report 11730584 (Version 1)
Quarter: 2015Q4

REPORT INFORMATION
  Report Type: Spontaneous
  Country: US (occurrence: US)
  Receive Date: 20151110
  Receipt Date: 20151110
  Transmission Date: 20160304
  Serious: No
  Sender: FDA-Public Use
  Company Number: US-ELI_LILLY_AND_COMPANY-US201202002253

PATIENT
  Sex: Female

DRUGS (1)
  1. FORTEO [Suspect]
     Active Substance: TERIPARATIDE
     Dosage: UNK UNK, UNKNOWN
     Route: 065

REACTIONS (7)
  - Dehydration [Unknown]
  - Feeling abnormal [Unknown]
  - Decreased appetite [Unknown]
  - Lethargy [Unknown]
  - Hypophagia [Unknown]
  - Weight increased [Recovered/Resolved]
  - Weight decreased [Unknown]
